FAERS Safety Report 9109567 (Version 1)
Quarter: 2013Q1

REPORT INFORMATION
  Report Type: Spontaneous
  Country: US (occurrence: US)
  Receive Date: 20130222
  Receipt Date: 20130222
  Transmission Date: 20140127
  Serious: Yes (Other)
  Sender: FDA-Public Use
  Company Number: US-TEVA-355608USA

PATIENT
  Sex: Male

DRUGS (5)
  1. TREANDA [Suspect]
     Indication: MANTLE CELL LYMPHOMA
     Dosage: SINGLE CYCLE/NOW ON HOLD
     Route: 042
  2. RITUXIMAB [Suspect]
     Indication: MANTLE CELL LYMPHOMA
     Route: 042
  3. VELCADE [Suspect]
     Indication: MANTLE CELL LYMPHOMA
     Route: 042
  4. PRILOSEC [Concomitant]
  5. FIORICET [Concomitant]

REACTIONS (3)
  - Rash pruritic [Not Recovered/Not Resolved]
  - Pain [Not Recovered/Not Resolved]
  - Urticaria [Not Recovered/Not Resolved]
